FAERS Safety Report 13142190 (Version 2)
Quarter: 2017Q1

REPORT INFORMATION
  Report Type: Report from Study
  Country: CA (occurrence: CA)
  Receive Date: 20170124
  Receipt Date: 20170316
  Transmission Date: 20170428
  Serious: Yes (Other)
  Sender: FDA-Public Use
  Company Number: CA-ARBOR PHARMACEUTICALS, LLC-CA-2017ARB000155

PATIENT
  Age: 70 Year
  Sex: Male

DRUGS (1)
  1. AZILSARTAN MEDOXOMIL\CHLORTHALIDONE [Suspect]
     Active Substance: AZILSARTAN KAMEDOXOMIL\CHLORTHALIDONE
     Indication: HYPERTENSION
     Dosage: UNK
     Dates: start: 20161128, end: 20170104

REACTIONS (4)
  - Wrong technique in product usage process [Unknown]
  - Breast tenderness [Unknown]
  - Blood creatinine abnormal [Unknown]
  - Rash pruritic [Unknown]

NARRATIVE: CASE EVENT DATE: 20161128
